FAERS Safety Report 8490684-3 (Version None)
Quarter: 2012Q3

REPORT INFORMATION
  Report Type: 
  Country: None (occurrence: None)
  Receive Date: 20120705
  Receipt Date: 20120626
  Transmission Date: 20120928
  Serious: Yes (Hospitalization)
  Sender: FDA-Public Use
  Company Number: FR-ASTRAZENECA-2012SE44097

PATIENT
  Sex: Male

DRUGS (6)
  1. VALSARTAN  AND HYDROCHLOROTHIAZIDE [Suspect]
     Indication: HYPERTENSION
     Dosage: 80 MG /12.5 MG
     Route: 048
  2. FENOFIBRATE [Suspect]
     Indication: DYSLIPIDAEMIA
     Route: 048
  3. TENORMIN [Suspect]
     Indication: MYOCARDIAL ISCHAEMIA
     Route: 048
  4. AMARYL [Suspect]
     Indication: DIABETES MELLITUS
     Route: 048
  5. PLAVIX [Suspect]
     Indication: MYOCARDIAL ISCHAEMIA
     Route: 048
  6. METFORMIN HCL [Suspect]
     Indication: DIABETES MELLITUS
     Route: 048

REACTIONS (2)
  - COLITIS [None]
  - GENERAL PHYSICAL HEALTH DETERIORATION [None]
